FAERS Safety Report 12103954 (Version 5)
Quarter: 2016Q3

REPORT INFORMATION
  Report Type: Spontaneous
  Country: US (occurrence: US)
  Receive Date: 20160223
  Receipt Date: 20160802
  Transmission Date: 20161109
  Serious: No
  Sender: FDA-Public Use
  Company Number: US-009507513-1602USA010173

PATIENT
  Sex: Female
  Weight: 175.9 kg

DRUGS (1)
  1. NEXPLANON [Suspect]
     Active Substance: ETONOGESTREL
     Indication: CONTRACEPTION
     Dosage: 1 ROD EVERY 3 YEARS
     Route: 059
     Dates: start: 20150119

REACTIONS (3)
  - Complication associated with device [Not Recovered/Not Resolved]
  - Drug dose omission [Unknown]
  - Maternal exposure timing unspecified [Unknown]
